FAERS Safety Report 5294413-6 (Version None)
Quarter: 2007Q2

REPORT INFORMATION
  Report Type: 
  Country: None (occurrence: None)
  Receive Date: 20070412
  Receipt Date: 20070329
  Transmission Date: 20071010
  Serious: Yes (Other)
  Sender: FDA-Public Use
  Company Number: PHBS2007IT05971

PATIENT
  Age: 6 Year
  Sex: Male

DRUGS (1)
  1. CYCLOSPORINE [Suspect]
     Indication: STEM CELL TRANSPLANT

REACTIONS (4)
  - ELECTROENCEPHALOGRAM ABNORMAL [None]
  - IMMUNOSUPPRESSANT DRUG LEVEL INCREASED [None]
  - PETIT MAL EPILEPSY [None]
  - STATUS EPILEPTICUS [None]
